FAERS Safety Report 9431230 (Version 2)
Quarter: 2013Q3

REPORT INFORMATION
  Report Type: Spontaneous
  Country: US (occurrence: US)
  Receive Date: 20130730
  Receipt Date: 20130824
  Transmission Date: 20140515
  Serious: No
  Sender: FDA-Public Use
  Company Number: US-009507513-1307USA013564

PATIENT
  Age: 10 Year
  Sex: Female
  Weight: 40.36 kg

DRUGS (2)
  1. DULERA [Suspect]
     Indication: ASTHMA
     Dosage: 100/5 MCG, 2 PUFFS TWICE A DAY
     Route: 055
     Dates: start: 20130630
  2. DULERA [Suspect]
     Dosage: 1 PUFF DAILY
     Route: 055
     Dates: start: 2013

REACTIONS (2)
  - Gingival pain [Not Recovered/Not Resolved]
  - Tooth discolouration [Not Recovered/Not Resolved]
